FAERS Safety Report 10157654 (Version 1)
Quarter: 2014Q2

REPORT INFORMATION
  Report Type: Spontaneous
  Country: BR (occurrence: BR)
  Receive Date: 20140507
  Receipt Date: 20140507
  Transmission Date: 20141212
  Serious: Yes (Hospitalization)
  Sender: FDA-Public Use
  Company Number: BR-US-EMD SERONO, INC.-7289071

PATIENT
  Age: 38 Year
  Sex: Female

DRUGS (6)
  1. GONAL-F [Suspect]
     Indication: PREGNANCY
     Dates: start: 2011
  2. GONAL-F [Suspect]
     Dates: start: 20130701
  3. CLOMIFENE CITRATE [Concomitant]
     Indication: PREGNANCY
     Dates: start: 201302
  4. FOLIC ACID [Concomitant]
     Indication: PRODUCT USED FOR UNKNOWN INDICATION
  5. METFORMIN [Concomitant]
     Indication: PROPHYLAXIS
  6. MATERNA                            /01700601/ [Concomitant]
     Indication: PRODUCT USED FOR UNKNOWN INDICATION

REACTIONS (4)
  - Abortion spontaneous [Unknown]
  - Cervical incompetence [Unknown]
  - Twin pregnancy [Recovered/Resolved]
  - Incorrect dose administered [Unknown]
